FAERS Safety Report 4360757-5 (Version None)
Quarter: 2004Q2

REPORT INFORMATION
  Report Type: 
  Country: None (occurrence: None)
  Receive Date: 20040517
  Receipt Date: 20040504
  Transmission Date: 20050107
  Serious: Yes (Other)
  Sender: FDA-Public Use
  Company Number: 2004021540

PATIENT
  Age: 72 Year
  Sex: Female
  Weight: 81.6475 kg

DRUGS (8)
  1. LIPITOR [Suspect]
     Indication: BLOOD CHOLESTEROL INCREASED
     Dosage: 10 MG (1 IN 1 D), ORAL
     Route: 048
     Dates: start: 20030101
  2. INSULIN [Concomitant]
  3. WARFARIN SODIUM [Concomitant]
  4. GABAPENTIN [Concomitant]
  5. AMLODIPINE BESYLATE [Concomitant]
  6. TOLTERODINE L-TARTRATE (TOLTERODINE L-TARTRATE) [Concomitant]
  7. PANTOPRAZOLE (PANTOPRAZOLE) [Concomitant]
  8. DONEPEZIL HCL [Concomitant]

REACTIONS (5)
  - AMNESIA [None]
  - CEREBROVASCULAR ACCIDENT [None]
  - COGNITIVE DISORDER [None]
  - TREATMENT NONCOMPLIANCE [None]
  - VASCULAR DEMENTIA [None]
